FAERS Safety Report 7046306-1 (Version None)
Quarter: 2010Q4

REPORT INFORMATION
  Report Type: 
  Country: None (occurrence: None)
  Receive Date: 20101014
  Receipt Date: 20101005
  Transmission Date: 20110411
  Serious: Yes (Hospitalization)
  Sender: FDA-Public Use
  Company Number: B0678945A

PATIENT
  Age: 54 Year
  Sex: Male

DRUGS (4)
  1. ABACAVIR SULFATE/LAMIVUDINE [Suspect]
     Indication: HIV INFECTION
     Dates: start: 20070501
  2. LOPINAVIR/RITONAVIR [Suspect]
     Indication: HIV INFECTION
     Dates: start: 20070501
  3. PHENYTOIN [Concomitant]
     Dosage: 300MG PER DAY
  4. LEVETIRACETAM [Concomitant]
     Dosage: 3G PER DAY

REACTIONS (4)
  - CEREBRAL ATROPHY [None]
  - PARTIAL SEIZURES [None]
  - STATUS EPILEPTICUS [None]
  - STUPOR [None]
